FAERS Safety Report 6379994-3 (Version None)
Quarter: 2009Q3

REPORT INFORMATION
  Report Type: 
  Country: None (occurrence: None)
  Receive Date: 20090928
  Receipt Date: 20090914
  Transmission Date: 20100115
  Serious: Yes (Hospitalization)
  Sender: FDA-Public Use
  Company Number: GB-MYLANLABS-2009S1016274

PATIENT
  Age: 4 Year
  Sex: Male

DRUGS (5)
  1. CARBAMAZEPINE [Suspect]
     Indication: SYDENHAM'S CHOREA
     Route: 065
  2. HALOPERIDOL [Suspect]
     Indication: SYDENHAM'S CHOREA
     Dosage: SINGLE DOSE
     Route: 065
  3. CLOBAZAM [Suspect]
     Indication: SYDENHAM'S CHOREA
     Route: 065
  4. METHYLPREDNISOLONE 4MG TAB [Concomitant]
     Indication: DRUG USE FOR UNKNOWN INDICATION
     Route: 065
  5. VALPROATE SODIUM [Concomitant]
     Indication: DRUG USE FOR UNKNOWN INDICATION
     Route: 065

REACTIONS (6)
  - AKINESIA [None]
  - APHASIA [None]
  - CONDITION AGGRAVATED [None]
  - DYSKINESIA [None]
  - DYSTONIA [None]
  - OCULOGYRIC CRISIS [None]
